FAERS Safety Report 17932378 (Version 1)
Quarter: 2020Q2

REPORT INFORMATION
  Report Type: Spontaneous
  Country: US (occurrence: US)
  Receive Date: 20200624
  Receipt Date: 20200624
  Transmission Date: 20200714
  Serious: No
  Sender: FDA-Public Use
  Company Number: US-PRINSTON PHARMACEUTICAL INC.-2020PRN00126

PATIENT
  Age: 70 Year
  Sex: Female
  Weight: 54.42 kg

DRUGS (6)
  1. DONEPEZIL HYDROCHLORIDE. [Suspect]
     Active Substance: DONEPEZIL HYDROCHLORIDE
     Dosage: 5 MG, 1X/DAY
     Route: 048
     Dates: start: 20200405, end: 20200414
  2. METRONIDAZOLE GEL [Concomitant]
     Active Substance: METRONIDAZOLE
  3. ASPIRIN. [Concomitant]
     Active Substance: ASPIRIN
  4. DONEPEZIL HYDROCHLORIDE. [Suspect]
     Active Substance: DONEPEZIL HYDROCHLORIDE
     Indication: COGNITIVE DISORDER
     Dosage: 5 MG, 1X/DAY
     Route: 048
     Dates: start: 20200301, end: 20200329
  5. ESTRING [Concomitant]
     Active Substance: ESTRADIOL
     Dosage: UNK
     Dates: start: 201911
  6. METOPROLOL SUCCINATE ER [Concomitant]
     Active Substance: METOPROLOL SUCCINATE

REACTIONS (5)
  - Muscle spasms [Recovered/Resolved]
  - Bacterial vulvovaginitis [Not Recovered/Not Resolved]
  - Muscle twitching [Recovered/Resolved]
  - Off label use [Recovered/Resolved]
  - Abnormal dreams [Recovered/Resolved]

NARRATIVE: CASE EVENT DATE: 202003
